FAERS Safety Report 4415844-X (Version None)
Quarter: 2004Q3

REPORT INFORMATION
  Report Type: 
  Country: None (occurrence: None)
  Receive Date: 20040730
  Receipt Date: 20040721
  Transmission Date: 20050211
  Serious: Yes (Other)
  Sender: FDA-Public Use
  Company Number: 2004-01-1123

PATIENT
  Age: 66 Year
  Sex: Female

DRUGS (1)
  1. CELESTONE [Suspect]
     Indication: EXOSTOSIS
     Dates: start: 20020201, end: 20020201

REACTIONS (2)
  - DRUG HYPERSENSITIVITY [None]
  - REACTION TO DRUG EXCIPIENT [None]
